FAERS Safety Report 7068845-X (Version None)
Quarter: 2010Q4

REPORT INFORMATION
  Report Type: 
  Country: None (occurrence: None)
  Receive Date: 20101028
  Receipt Date: 20101020
  Transmission Date: 20110411
  Serious: Yes (Hospitalization)
  Sender: FDA-Public Use
  Company Number: GXKR2010IT11877

PATIENT
  Age: 64 Year
  Sex: Male

DRUGS (2)
  1. LEFLUNOMIDE (NGX) [Suspect]
     Indication: RHEUMATOID ARTHRITIS
     Dosage: 20 MG EVERY OTHER DAY
     Route: 065
  2. METHOTREXATE [Concomitant]
     Dosage: 10 MG/WEEK

REACTIONS (3)
  - CYTOMEGALOVIRUS TEST POSITIVE [None]
  - EPSTEIN-BARR VIRUS TEST POSITIVE [None]
  - HISTIOCYTOSIS HAEMATOPHAGIC [None]
